FAERS Safety Report 9876857 (Version 2)
Quarter: 2014Q1

REPORT INFORMATION
  Report Type: Other
  Country: US (occurrence: US)
  Receive Date: 20140206
  Receipt Date: 20140206
  Transmission Date: 20141002
  Serious: No
  Sender: FDA-Public Use
  Company Number: US-ACORDA-ACO_37990_2013

PATIENT
  Age: 45 Year
  Sex: Female
  Weight: 63.49 kg

DRUGS (6)
  1. AMPYRA [Suspect]
     Indication: MOBILITY DECREASED
     Dosage: 10 MG, BID
     Route: 048
     Dates: start: 20130212, end: 20130429
  2. COPAXONE [Concomitant]
     Indication: PRODUCT USED FOR UNKNOWN INDICATION
     Dosage: 20 MG, QD
     Route: 058
  3. CYMBALTA [Concomitant]
     Indication: PRODUCT USED FOR UNKNOWN INDICATION
     Dosage: 60 MG, BID
     Route: 048
  4. LORTAB [Concomitant]
     Indication: PRODUCT USED FOR UNKNOWN INDICATION
     Dosage: 7.5/500, TID  PRN
     Route: 048
  5. TRAZODONE HCL [Concomitant]
     Indication: PRODUCT USED FOR UNKNOWN INDICATION
     Dosage: 50 MG, 1.5 TABLETS QHS
     Route: 048
  6. FENTANYL [Concomitant]
     Indication: PRODUCT USED FOR UNKNOWN INDICATION
     Dosage: 75 ?G, Q 72 HOURS
     Route: 062

REACTIONS (1)
  - Drug ineffective [Unknown]
